FAERS Safety Report 9775427 (Version 2)
Quarter: 2014Q1

REPORT INFORMATION
  Report Type: Spontaneous
  Country: US (occurrence: US)
  Receive Date: 20131220
  Receipt Date: 20140318
  Transmission Date: 20141002
  Serious: No
  Sender: FDA-Public Use
  Company Number: US-GALDERMA-US13003366

PATIENT
  Age: 58 Year
  Sex: Female

DRUGS (5)
  1. MIRVASO (BRIMONIDINE) TOPICAL GEL, 0.33% [Suspect]
     Indication: ROSACEA
     Dosage: 0.33 %
     Route: 061
     Dates: start: 20131015
  2. FINACEA (AZELAIC ACID) [Concomitant]
     Indication: ROSACEA
     Route: 061
     Dates: start: 201308
  3. AVEENO MOISTURIZER [Concomitant]
     Indication: DRY SKIN PROPHYLAXIS
     Route: 061
  4. FLORAZONE (CARDIOSPERMUM TINCTURE) [Concomitant]
     Indication: INFLAMMATION
     Route: 061
  5. CALCITONIN SALMON [Concomitant]
     Indication: OSTEOPOROSIS

REACTIONS (3)
  - Contusion [Recovered/Resolved]
  - Erythema [Recovered/Resolved]
  - Flushing [Recovered/Resolved]
